FAERS Safety Report 19178075 (Version 2)
Quarter: 2021Q2

REPORT INFORMATION
  Report Type: Spontaneous
  Country: US (occurrence: US)
  Receive Date: 20210426
  Receipt Date: 20210501
  Transmission Date: 20210717
  Serious: Yes (Other)
  Sender: FDA-Public Use
  Company Number: US-LUPIN PHARMACEUTICALS INC.-2021-05000

PATIENT
  Age: 37 Year
  Sex: Female

DRUGS (1)
  1. CEFUROXIME AXETIL TABLETS [Suspect]
     Active Substance: CEFUROXIME AXETIL
     Indication: EAR INFECTION
     Dosage: UNK
     Route: 048
     Dates: start: 20210410, end: 20210412

REACTIONS (8)
  - Cough [Recovered/Resolved]
  - Dyspnoea [Recovered/Resolved]
  - Product size issue [Unknown]
  - Erythema [Recovered/Resolved]
  - Foreign body in throat [Recovered/Resolved]
  - Lip pain [Recovered/Resolved]
  - Choking [Recovered/Resolved]
  - Product solubility abnormal [Unknown]

NARRATIVE: CASE EVENT DATE: 20210411
